FAERS Safety Report 7925062-6 (Version None)
Quarter: 2011Q4

REPORT INFORMATION
  Report Type: 
  Country: None (occurrence: None)
  Receive Date: 20111118
  Receipt Date: 20110331
  Transmission Date: 20120403
  Serious: No
  Sender: FDA-Public Use
  Company Number: US-AMGEN-USASP2011017355

PATIENT
  Age: 52 Year
  Sex: Male

DRUGS (3)
  1. ENBREL [Suspect]
     Indication: PSORIATIC ARTHROPATHY
     Dosage: 50 MG, QWK
     Dates: start: 20040318
  2. HUMIRA [Concomitant]
  3. ENBREL [Suspect]
     Indication: PSORIASIS

REACTIONS (3)
  - PSORIASIS [None]
  - ACCIDENT [None]
  - ROTATOR CUFF REPAIR [None]
